FAERS Safety Report 12774873 (Version 1)
Quarter: 2016Q3

REPORT INFORMATION
  Report Type: Spontaneous
  Country: US (occurrence: US)
  Receive Date: 20160923
  Receipt Date: 20160923
  Transmission Date: 20161109
  Serious: Yes (Other)
  Sender: FDA-Public Use
  Company Number: US-GLAXOSMITHKLINE-US2016138617

PATIENT
  Sex: Female

DRUGS (1)
  1. NICODERM CQ [Suspect]
     Active Substance: NICOTINE
     Indication: PRODUCT USED FOR UNKNOWN INDICATION
     Dosage: 21 MG, UNK
     Dates: start: 20160921, end: 20160921

REACTIONS (6)
  - Diarrhoea [Unknown]
  - Overdose [Unknown]
  - Tremor [Unknown]
  - Palpitations [Unknown]
  - Nausea [Unknown]
  - Haematemesis [Unknown]

NARRATIVE: CASE EVENT DATE: 20160921
